FAERS Safety Report 8782737 (Version 1)
Quarter: 2012Q4

REPORT INFORMATION
  Report Type: 
  Country: US (occurrence: US)
  Receive Date: 20120913
  Receipt Date: 20120913
  Transmission Date: 20130627
  Serious: No
  Sender: FDA-Public Use
  Company Number: US-BAYER-2012-095500

PATIENT
  Sex: Male

DRUGS (1)
  1. GADAVIST [Suspect]
     Dosage: 10 ml, ONCE
     Dates: start: 20120912, end: 20120912

REACTIONS (1)
  - Nausea [None]
